FAERS Safety Report 24336157 (Version 1)
Quarter: 2024Q3

REPORT INFORMATION
  Report Type: Report from Study
  Country: ID (occurrence: ID)
  Receive Date: 20240919
  Receipt Date: 20240919
  Transmission Date: 20241016
  Serious: No
  Sender: ROCHE
  Company Number: ID-ROCHE-3427348

PATIENT
  Age: 59 Year
  Sex: Female

DRUGS (13)
  1. OSELTAMIVIR [Suspect]
     Active Substance: OSELTAMIVIR
     Indication: COVID-19
     Route: 065
  2. OMEPRAZOLE [Concomitant]
     Active Substance: OMEPRAZOLE
  3. SUKRALFAT [Concomitant]
  4. ZINC [Concomitant]
     Active Substance: ZINC
  5. AZITROMISIN [Concomitant]
  6. ATIVAN [Concomitant]
     Active Substance: LORAZEPAM
  7. VITAMIN C [Concomitant]
     Active Substance: ASCORBIC ACID
  8. POVIDONE-IODINE [Concomitant]
     Active Substance: POVIDONE-IODINE
  9. HYDROXYCHLOROQUINE [Concomitant]
     Active Substance: HYDROXYCHLOROQUINE
  10. LEVOFLOKSASIN [Concomitant]
  11. SERTRALINE [Concomitant]
     Active Substance: SERTRALINE HYDROCHLORIDE
  12. SMECTA [Concomitant]
     Active Substance: MONTMORILLONITE
  13. LOPERAMIDE [Concomitant]
     Active Substance: LOPERAMIDE

REACTIONS (3)
  - Off label use [Unknown]
  - Diarrhoea [Unknown]
  - Insomnia [Unknown]
